FAERS Safety Report 18118489 (Version 20)
Quarter: 2021Q4

REPORT INFORMATION
  Report Type: Spontaneous
  Country: US (occurrence: US)
  Receive Date: 20200806
  Receipt Date: 20211119
  Transmission Date: 20220303
  Serious: Yes (Death, Hospitalization, Other)
  Sender: FDA-Public Use
  Company Number: US-GLAXOSMITHKLINE-US2020AMR151722

PATIENT
  Sex: Female

DRUGS (13)
  1. FLOLAN [Suspect]
     Active Substance: EPOPROSTENOL SODIUM
     Indication: Pulmonary arterial hypertension
     Dosage: 33 DF, CO
     Route: 042
     Dates: start: 20050202
  2. FLOLAN [Suspect]
     Active Substance: EPOPROSTENOL SODIUM
     Indication: Pulmonary arterial hypertension
     Dosage: 33 NG/KG/MIN, CO
     Route: 042
     Dates: start: 20050202
  3. FLOLAN [Suspect]
     Active Substance: EPOPROSTENOL SODIUM
     Indication: Pulmonary arterial hypertension
     Dosage: 33 NG/KG/MIN, CO, FLOLAN DOSE INCREASED TO 42NG/KG/MIN.
     Route: 042
     Dates: start: 20050202
  4. GLYCINE\MANNITOL\SODIUM CHLORIDE [Suspect]
     Active Substance: GLYCINE\MANNITOL\SODIUM CHLORIDE
     Indication: Pulmonary arterial hypertension
     Dosage: UNK
     Route: 042
     Dates: start: 20190123
  5. GLYCINE\MANNITOL\SODIUM CHLORIDE [Suspect]
     Active Substance: GLYCINE\MANNITOL\SODIUM CHLORIDE
     Dosage: UNK
     Dates: start: 20190123
  6. GLYCINE\MANNITOL\SODIUM CHLORIDE [Suspect]
     Active Substance: GLYCINE\MANNITOL\SODIUM CHLORIDE
     Dosage: UNK
     Dates: start: 20190123
  7. GLYCINE\MANNITOL\SODIUM CHLORIDE [Suspect]
     Active Substance: GLYCINE\MANNITOL\SODIUM CHLORIDE
     Dosage: UNK
     Dates: start: 20190123
  8. GLYCINE\MANNITOL\SODIUM CHLORIDE [Suspect]
     Active Substance: GLYCINE\MANNITOL\SODIUM CHLORIDE
     Dosage: UNK
     Dates: start: 20190123
  9. GLYCINE\MANNITOL\SODIUM CHLORIDE [Suspect]
     Active Substance: GLYCINE\MANNITOL\SODIUM CHLORIDE
     Dosage: UNK
     Dates: start: 20190123
  10. FLOLAN [Suspect]
     Active Substance: EPOPROSTENOL SODIUM
     Indication: Pulmonary arterial hypertension
     Dosage: 42 NG/KG/MIN
     Dates: start: 20050202
  11. FLOLAN [Suspect]
     Active Substance: EPOPROSTENOL SODIUM
     Indication: Pulmonary arterial hypertension
     Dosage: 42 NG/KG/MIN DF, CO
     Dates: start: 20050202
  12. FLOLAN [Suspect]
     Active Substance: EPOPROSTENOL SODIUM
     Indication: Pulmonary arterial hypertension
     Dosage: 42 DF, CO, 42 NG/KG/MIN
     Route: 042
     Dates: start: 20050202
  13. FLOLAN [Suspect]
     Active Substance: EPOPROSTENOL SODIUM
     Indication: Pulmonary arterial hypertension
     Dosage: 46 DF, CO, 46 NG/KG/MIN
     Route: 042
     Dates: start: 20050202

REACTIONS (21)
  - Pulseless electrical activity [Fatal]
  - Sepsis [Fatal]
  - Pulmonary hypertension [Recovered/Resolved]
  - Hospitalisation [Unknown]
  - Catheter site haemorrhage [Recovered/Resolved]
  - Device leakage [Recovered/Resolved]
  - Fluid retention [Recovered/Resolved]
  - Blood potassium abnormal [Recovered/Resolved]
  - Blood pressure abnormal [Recovered/Resolved]
  - Abdominal pain [Unknown]
  - Chills [Unknown]
  - Pain [Unknown]
  - Chest pain [Unknown]
  - Blood magnesium abnormal [Unknown]
  - Palpitations [Recovering/Resolving]
  - Cardiac failure [Unknown]
  - Hypervolaemia [Unknown]
  - COVID-19 [Unknown]
  - Malaise [Unknown]
  - Hypersensitivity [Unknown]
  - Overdose [Unknown]
